FAERS Safety Report 5735923-4 (Version None)
Quarter: 2008Q2

REPORT INFORMATION
  Report Type: 
  Country: None (occurrence: None)
  Receive Date: 20080509
  Receipt Date: 20080501
  Transmission Date: 20081010
  Serious: Yes (Other)
  Sender: FDA-Public Use
  Company Number: 2008011499

PATIENT
  Age: 45 Year
  Sex: Female
  Weight: 63.5 kg

DRUGS (2)
  1. ZYRTEC [Suspect]
     Indication: HYPERSENSITIVITY
     Dosage: 1 TABLET ONCE, ORAL
     Route: 048
     Dates: start: 20080430, end: 20080430
  2. SYNTHROID [Concomitant]

REACTIONS (3)
  - DIPLOPIA [None]
  - RHINORRHOEA [None]
  - VISION BLURRED [None]
